FAERS Safety Report 7104726-0 (Version None)
Quarter: 2010Q4

REPORT INFORMATION
  Report Type: 
  Country: None (occurrence: None)
  Receive Date: 20101116
  Receipt Date: 20101108
  Transmission Date: 20110411
  Serious: Yes (Hospitalization)
  Sender: FDA-Public Use
  Company Number: MX-SHIRE-SPV1-2010-01949

PATIENT
  Sex: Male

DRUGS (6)
  1. ELAPRASE [Suspect]
     Indication: MUCOPOLYSACCHARIDOSIS II
     Dosage: 0.5 MG/KG, 1X/WEEK
     Route: 041
     Dates: start: 20100209, end: 20101027
  2. ELAPRASE [Suspect]
     Dosage: 0.5MG/KG
     Route: 041
     Dates: start: 20101110
  3. VIGABATRIN [Concomitant]
     Indication: CONVULSION
  4. DIFENILHIDANTOINA                  /00017401/ [Concomitant]
     Indication: CONVULSION
  5. LOSARTAN [Concomitant]
  6. BROMHEXINA [Concomitant]

REACTIONS (4)
  - INFUSION RELATED REACTION [None]
  - PNEUMONIA [None]
  - PYREXIA [None]
  - STATUS EPILEPTICUS [None]
